FAERS Safety Report 11467760 (Version 1)
Quarter: 2015Q3

REPORT INFORMATION
  Report Type: Spontaneous
  Country: CO (occurrence: CO)
  Receive Date: 20150908
  Receipt Date: 20150908
  Transmission Date: 20151125
  Serious: Yes (Other)
  Sender: FDA-Public Use
  Company Number: CO-ASTELLAS-2015US031959

PATIENT
  Age: 16 Month
  Sex: Female

DRUGS (3)
  1. GLUCANTIME [Concomitant]
     Active Substance: MEGLUMINE ANTIMONIATE
     Indication: PRODUCT USED FOR UNKNOWN INDICATION
     Dosage: UNK UNK, UNKNOWN FREQ.
     Route: 065
     Dates: start: 199401
  2. AMBISOME [Suspect]
     Active Substance: AMPHOTERICIN B
     Indication: VISCERAL LEISHMANIASIS
     Dosage: 2 MG/KG, ONCE DAILY DURATION 21 DAYS
     Route: 042
  3. PENTACARINAT [Concomitant]
     Active Substance: PENTAMIDINE ISETHIONATE
     Indication: PRODUCT USED FOR UNKNOWN INDICATION
     Dosage: UNK UNK, UNKNOWN FREQ.
     Route: 065

REACTIONS (3)
  - Hypothermia [Recovered/Resolved]
  - Hyperkalaemia [Recovered/Resolved]
  - Off label use [Unknown]
